FAERS Safety Report 5514455-2 (Version None)
Quarter: 2007Q4

REPORT INFORMATION
  Report Type: 
  Country: None (occurrence: None)
  Receive Date: 20071113
  Receipt Date: 20070525
  Transmission Date: 20080405
  Serious: No
  Sender: FDA-Public Use
  Company Number: A0653264A

PATIENT
  Sex: Female

DRUGS (4)
  1. CARVEDILOL [Suspect]
     Indication: DRUG USE FOR UNKNOWN INDICATION
  2. CLONIDINE [Suspect]
     Indication: DRUG USE FOR UNKNOWN INDICATION
  3. VASOTEC [Suspect]
     Indication: DRUG USE FOR UNKNOWN INDICATION
  4. NORVASC [Suspect]
     Indication: DRUG USE FOR UNKNOWN INDICATION

REACTIONS (1)
  - BLOOD PRESSURE INADEQUATELY CONTROLLED [None]
